FAERS Safety Report 9537772 (Version 1)
Quarter: 2013Q3

REPORT INFORMATION
  Report Type: Report from Study
  Country: CO (occurrence: CO)
  Receive Date: 20130919
  Receipt Date: 20130919
  Transmission Date: 20140515
  Serious: Yes (Hospitalization)
  Sender: FDA-Public Use
  Company Number: CO-ROCHE-1276981

PATIENT
  Age: 82 Year
  Sex: Male
  Weight: 72 kg

DRUGS (2)
  1. LUCENTIS [Suspect]
     Indication: MACULAR DEGENERATION
     Route: 050
     Dates: start: 20130501
  2. GLIBENCLAMIDE [Concomitant]
     Route: 065

REACTIONS (1)
  - Angina pectoris [Recovering/Resolving]
